FAERS Safety Report 5613182-0 (Version None)
Quarter: 2008Q1

REPORT INFORMATION
  Report Type: 
  Country: None (occurrence: None)
  Receive Date: 20080129
  Receipt Date: 20080117
  Transmission Date: 20080703
  Serious: Yes (Other)
  Sender: FDA-Public Use
  Company Number: GXKR2008GB00903

PATIENT
  Age: 54 Year
  Sex: Female

DRUGS (4)
  1. SIMVASTATIN [Suspect]
     Dosage: 20 MG, ORAL
     Route: 048
     Dates: start: 20061201
  2. CLOBAZAM (CLOBAZAM) UNKNOWN [Suspect]
     Dosage: 10 MG, Q72H
  3. MIXTARD (INSULIN PORCINE) UNKNOWN [Suspect]
     Dosage: 32 IU/DAY
  4. VALPROIC ACID [Suspect]
     Dosage: 200 MG, QD

REACTIONS (3)
  - CONDITION AGGRAVATED [None]
  - CONVULSION [None]
  - DRUG INTERACTION [None]
